FAERS Safety Report 22159055 (Version 2)
Quarter: 2023Q2

REPORT INFORMATION
  Report Type: Spontaneous
  Country: US (occurrence: US)
  Receive Date: 20230331
  Receipt Date: 20230509
  Transmission Date: 20230722
  Serious: No
  Sender: FDA-Public Use
  Company Number: US-AIMMUNE THERAPEUTICS, INC.-2023AIMT00276

PATIENT

DRUGS (6)
  1. PALFORZIA [Suspect]
     Active Substance: PEANUT
     Indication: Food allergy
     Dosage: IDE (0.5-6MG), ONCE
     Route: 048
     Dates: start: 20230124, end: 20230124
  2. PALFORZIA [Suspect]
     Active Substance: PEANUT
     Dosage: 20 MG, 1X/DAY
     Route: 048
     Dates: start: 20230307, end: 202303
  3. PALFORZIA [Suspect]
     Active Substance: PEANUT
     Dosage: 20 MG, ONCE, LAST DOSE PRIOR TO EVENT
     Route: 048
     Dates: start: 202303, end: 202303
  4. PALFORZIA [Suspect]
     Active Substance: PEANUT
     Dosage: 5 MG, 1X/DAY, RESTARTED
     Route: 048
     Dates: start: 20230404, end: 20230406
  5. PALFORZIA [Suspect]
     Active Substance: PEANUT
     Dosage: 10 MG, 1X/DAY
     Route: 048
     Dates: start: 20230407, end: 20230409
  6. PALFORZIA [Suspect]
     Active Substance: PEANUT
     Dosage: 20 MG, 1X/DAY
     Route: 048
     Dates: start: 20230410

REACTIONS (2)
  - Illness [Recovered/Resolved]
  - Pyrexia [Recovered/Resolved]

NARRATIVE: CASE EVENT DATE: 20230301
